FAERS Safety Report 7200435-8 (Version None)
Quarter: 2010Q4

REPORT INFORMATION
  Report Type: 
  Country: None (occurrence: None)
  Receive Date: 20101228
  Receipt Date: 20101220
  Transmission Date: 20110411
  Serious: Yes (Disabling)
  Sender: FDA-Public Use
  Company Number: ES-MERCK-0902ESP00049

PATIENT
  Age: 37 Year
  Sex: Male

DRUGS (1)
  1. PROPECIA [Suspect]
     Indication: ALOPECIA
     Route: 048
     Dates: start: 20070101, end: 20090216

REACTIONS (4)
  - ASTHENOSPERMIA [None]
  - AZOOSPERMIA [None]
  - HYPOSPERMIA [None]
  - TERATOSPERMIA [None]
